FAERS Safety Report 6341728-6 (Version None)
Quarter: 2009Q3

REPORT INFORMATION
  Report Type: 
  Country: None (occurrence: None)
  Receive Date: 20090904
  Receipt Date: 20090824
  Transmission Date: 20100115
  Serious: Yes (Disabling)
  Sender: FDA-Public Use
  Company Number: US-PFIZER INC-2009249487

PATIENT
  Sex: Female
  Weight: 68.027 kg

DRUGS (3)
  1. XANAX [Suspect]
     Dosage: UNK
     Dates: start: 19870101
  2. XANAX [Suspect]
     Dates: start: 20090501
  3. VITAMIN D [Concomitant]
     Dosage: UNK

REACTIONS (8)
  - ANXIETY [None]
  - DISABILITY [None]
  - DRUG EFFECT DECREASED [None]
  - HYPOTHYROIDISM [None]
  - MALAISE [None]
  - MIDDLE INSOMNIA [None]
  - NAUSEA [None]
  - NERVOUSNESS [None]
